FAERS Safety Report 8489527-3 (Version None)
Quarter: 2012Q3

REPORT INFORMATION
  Report Type: 
  Country: None (occurrence: None)
  Receive Date: 20120705
  Receipt Date: 20120626
  Transmission Date: 20120928
  Serious: Yes (Other)
  Sender: FDA-Public Use
  Company Number: JP-JNJFOC-20120513995

PATIENT
  Sex: Female
  Weight: 39 kg

DRUGS (17)
  1. SIMPONI [Suspect]
     Indication: RHEUMATOID ARTHRITIS
     Route: 058
     Dates: start: 20111108
  2. SIMPONI [Suspect]
     Route: 058
     Dates: start: 20120425
  3. NIFEDIPINE [Concomitant]
     Route: 048
  4. SIMPONI [Suspect]
     Route: 058
     Dates: start: 20111205
  5. SITAGLIPTIN PHOSPHATE [Concomitant]
     Route: 048
  6. SIMPONI [Suspect]
     Route: 058
     Dates: start: 20120328
  7. TELMISARTAN [Concomitant]
     Route: 048
  8. ALFACALCIDOL [Concomitant]
     Indication: PROPHYLAXIS
     Route: 048
  9. SIMPONI [Suspect]
     Route: 058
     Dates: start: 20120201
  10. BUCILLAMINE [Concomitant]
     Indication: RHEUMATOID ARTHRITIS
     Route: 048
  11. CAMOSTAT MESILATE [Concomitant]
     Indication: PROPHYLAXIS
     Route: 048
  12. SIMPONI [Suspect]
     Route: 058
     Dates: start: 20120229
  13. PREDNISOLONE [Concomitant]
     Indication: RHEUMATOID ARTHRITIS
     Route: 048
  14. LANSOPRAZOLE [Concomitant]
     Indication: PROPHYLAXIS
     Route: 048
  15. SIMPONI [Suspect]
     Route: 058
     Dates: start: 20120104
  16. METHOTREXATE [Concomitant]
     Indication: RHEUMATOID ARTHRITIS
     Dates: start: 20111108
  17. FENOFIBRATE [Concomitant]
     Route: 048

REACTIONS (1)
  - RENAL DISORDER [None]
